FAERS Safety Report 20184322 (Version 1)
Quarter: 2021Q4

REPORT INFORMATION
  Report Type: Spontaneous
  Country: US (occurrence: US)
  Receive Date: 20211214
  Receipt Date: 20211214
  Transmission Date: 20220303
  Serious: No
  Sender: FDA-Public Use
  Company Number: US-SK LIFE SCIENCE, INC-SKPVG-2021-001076

PATIENT

DRUGS (1)
  1. XCOPRI [Suspect]
     Active Substance: CENOBAMATE
     Indication: Partial seizures
     Dosage: 200 MILLIGRAM, 1 TABLET, QD.
     Route: 048

REACTIONS (2)
  - Peripheral swelling [Recovered/Resolved]
  - Rash [Recovered/Resolved]
